FAERS Safety Report 25423398 (Version 1)
Quarter: 2025Q2

REPORT INFORMATION
  Report Type: Spontaneous
  Country: GB (occurrence: GB)
  Receive Date: 20250611
  Receipt Date: 20250611
  Transmission Date: 20250717
  Serious: Yes (Hospitalization, Other)
  Sender: MERCK SHARP & DOHME LLC
  Company Number: None

PATIENT
  Age: 3 Year
  Sex: Male

DRUGS (3)
  1. MEASLES-MUMPS-RUBELLA-VARICELLA VIRUS VACCINE, LIVE [Suspect]
     Active Substance: MEASLES-MUMPS-RUBELLA-VARICELLA VIRUS VACCINE, LIVE
     Dates: start: 20250527, end: 20250527
  2. VARICELLA-ZOSTER VIRUS STRAIN OKA/MERCK LIVE ANTIGEN [Suspect]
     Active Substance: VARICELLA-ZOSTER VIRUS STRAIN OKA/MERCK LIVE ANTIGEN
     Dates: start: 20250527, end: 20250527
  3. STERILE DILUENT (WATER) [Suspect]
     Active Substance: WATER

REACTIONS (6)
  - Blister [Unknown]
  - Erythema [Unknown]
  - Cellulitis [Recovering/Resolving]
  - Erythema [Unknown]
  - Pain [Unknown]
  - Vomiting [Unknown]

NARRATIVE: CASE EVENT DATE: 20250530
